FAERS Safety Report 13075489 (Version 1)
Quarter: 2016Q4

REPORT INFORMATION
  Report Type: Spontaneous
  Country: US (occurrence: US)
  Receive Date: 20161229
  Receipt Date: 20161229
  Transmission Date: 20170207
  Serious: Yes (Hospitalization)
  Sender: FDA-Public Use
  Company Number: None

PATIENT
  Age: 51 Year
  Sex: Female
  Weight: 45 kg

DRUGS (2)
  1. LEXAPRO [Suspect]
     Active Substance: ESCITALOPRAM OXALATE
     Indication: DEPRESSION
     Dosage: QUANTITY:30 TABLET(S); AT BEDTIME; ORAL?
     Route: 048
     Dates: start: 20140301, end: 20140401
  2. LEXAPRO [Suspect]
     Active Substance: ESCITALOPRAM OXALATE
     Indication: ANXIETY
     Dosage: QUANTITY:30 TABLET(S); AT BEDTIME; ORAL?
     Route: 048
     Dates: start: 20140301, end: 20140401

REACTIONS (5)
  - Suicide attempt [None]
  - Product substitution issue [None]
  - Depressed mood [None]
  - Anxiety [None]
  - Suicidal behaviour [None]
